FAERS Safety Report 4560293-7 (Version None)
Quarter: 2005Q1

REPORT INFORMATION
  Report Type: 
  Country: None (occurrence: None)
  Receive Date: 20050119
  Receipt Date: 20050119
  Transmission Date: 20050727
  Serious: Yes (Hospitalization)
  Sender: FDA-Public Use
  Company Number: None

PATIENT
  Age: 83 Year
  Sex: Male
  Weight: 88 kg

DRUGS (1)
  1. CELECOXIB [Suspect]
     Indication: PAIN
     Dosage: 200 MG QD
     Dates: start: 20010504, end: 20031125

REACTIONS (2)
  - PRURITUS [None]
  - RASH [None]
